APPROVED DRUG PRODUCT: ZAFIRLUKAST
Active Ingredient: ZAFIRLUKAST
Strength: 10MG
Dosage Form/Route: TABLET;ORAL
Application: A213163 | Product #001 | TE Code: AB
Applicant: AUROBINDO PHARMA LTD
Approved: Nov 27, 2023 | RLD: No | RS: No | Type: RX